FAERS Safety Report 16460292 (Version 1)
Quarter: 2019Q2

REPORT INFORMATION
  Report Type: Spontaneous
  Country: CA (occurrence: CA)
  Receive Date: 20190620
  Receipt Date: 20190620
  Transmission Date: 20190711
  Serious: Yes (Life-Threatening, Hospitalization, Other)
  Sender: FDA-Public Use
  Company Number: CA-TEVA-2019-CA-1066470

PATIENT
  Age: 26 Year
  Sex: Male
  Weight: 90 kg

DRUGS (3)
  1. ERGOCALCIFEROL. [Suspect]
     Active Substance: ERGOCALCIFEROL
     Indication: PRODUCT USED FOR UNKNOWN INDICATION
     Route: 065
  2. OMEGA-3 FATTY ACIDS [Suspect]
     Active Substance: OMEGA-3 FATTY ACIDS
     Indication: PRODUCT USED FOR UNKNOWN INDICATION
     Route: 065
  3. SULFAMETHOXAZOLE/TRIMETHOPRIM [Suspect]
     Active Substance: SULFAMETHOXAZOLE\TRIMETHOPRIM
     Indication: URINARY TRACT INFECTION
     Route: 048

REACTIONS (6)
  - Oral mucosal exfoliation [Recovering/Resolving]
  - Tongue exfoliation [Recovering/Resolving]
  - Stevens-Johnson syndrome [Recovering/Resolving]
  - Tongue pruritus [Recovering/Resolving]
  - Swollen tongue [Recovering/Resolving]
  - Tongue discomfort [Recovering/Resolving]
